FAERS Safety Report 16570848 (Version 1)
Quarter: 2019Q3

REPORT INFORMATION
  Report Type: Report from Study
  Country: IR (occurrence: IR)
  Receive Date: 20190715
  Receipt Date: 20190715
  Transmission Date: 20191004
  Serious: Yes (Hospitalization, Other)
  Sender: FDA-Public Use
  Company Number: IR-ACCORD-138135

PATIENT
  Sex: Female

DRUGS (1)
  1. METHOTREXATE. [Suspect]
     Active Substance: METHOTREXATE
     Indication: SYSTEMIC LUPUS ERYTHEMATOSUS
     Dosage: FOR MORE THAN 6 MONTHS

REACTIONS (4)
  - Overdose [Unknown]
  - Skin lesion [Unknown]
  - Toxicity to various agents [Unknown]
  - Mucosal ulceration [Unknown]
